FAERS Safety Report 22218128 (Version 1)
Quarter: 2023Q2

REPORT INFORMATION
  Report Type: Spontaneous
  Country: US (occurrence: US)
  Receive Date: 20230417
  Receipt Date: 20230417
  Transmission Date: 20230721
  Serious: Yes (Death, Life-Threatening, Hospitalization, Other)
  Sender: FDA-Public Use
  Company Number: US-PFIZER INC-202300138542

PATIENT
  Age: 30 Year
  Sex: Male
  Weight: 69.2 kg

DRUGS (17)
  1. METHYLPREDNISOLONE [Suspect]
     Active Substance: METHYLPREDNISOLONE
     Dosage: UNK
  2. MEDROL [Suspect]
     Active Substance: METHYLPREDNISOLONE
     Indication: Periorbital oedema
     Dosage: 1 KIT (DOSE PACK)
     Route: 048
     Dates: start: 20210902
  3. MEDROL [Suspect]
     Active Substance: METHYLPREDNISOLONE
     Indication: Swelling face
  4. EPINEPHRINE [Suspect]
     Active Substance: EPINEPHRINE
     Dosage: UNK
  5. DELTASONE [Suspect]
     Active Substance: PREDNISONE
     Indication: Swelling face
     Dosage: 2 DF, 1X/DAY
     Route: 048
     Dates: start: 20210724, end: 20210727
  6. DELTASONE [Suspect]
     Active Substance: PREDNISONE
     Indication: Periorbital oedema
     Dosage: 2 DF, 1X/DAY
     Route: 048
     Dates: start: 20210921, end: 20210925
  7. FLUCONAZOLE [Concomitant]
     Active Substance: FLUCONAZOLE
     Indication: Oropharyngeal candidiasis
     Dosage: UNK
  8. FLUCONAZOLE [Concomitant]
     Active Substance: FLUCONAZOLE
     Indication: Oesophageal candidiasis
  9. VANCOMYCIN HYDROCHLORIDE [Concomitant]
     Active Substance: VANCOMYCIN HYDROCHLORIDE
     Indication: Staphylococcal infection
     Dosage: UNK
  10. BICTEGRAVIR [Concomitant]
     Active Substance: BICTEGRAVIR
     Indication: Oral candidiasis
     Dosage: UNK
  11. EMTRICITABINE [Concomitant]
     Active Substance: EMTRICITABINE
     Indication: Oral candidiasis
     Dosage: UNK
  12. TENOFOVIR ALAFENAMIDE [Concomitant]
     Active Substance: TENOFOVIR ALAFENAMIDE
     Indication: Oral candidiasis
     Dosage: UNK
  13. VALGANCICLOVIR HYDROCHLORIDE [Concomitant]
     Active Substance: VALGANCICLOVIR HYDROCHLORIDE
     Indication: Cytomegalovirus infection
     Dosage: UNK
  14. PENICILLIN G 2-AMINO-4-METHYLPYRIMIDINE [Concomitant]
     Active Substance: PENICILLIN G 2-AMINO-4-METHYLPYRIMIDINE
     Indication: Secondary syphilis
     Dosage: UNK
  15. SULFAMETHOXAZOLE AND TRIMETHOPRIM [Concomitant]
     Active Substance: SULFAMETHOXAZOLE\TRIMETHOPRIM
     Indication: Pneumocystis jirovecii pneumonia
     Dosage: UNK
  16. DORAVIRINE [Concomitant]
     Active Substance: DORAVIRINE
     Indication: Kaposi^s sarcoma AIDS related
     Dosage: UNK
  17. COBICISTAT\DARUNAVIR ETHANOLATE [Concomitant]
     Active Substance: COBICISTAT\DARUNAVIR ETHANOLATE
     Indication: Kaposi^s sarcoma AIDS related
     Dosage: UNK

REACTIONS (4)
  - Kaposi^s sarcoma AIDS related [Fatal]
  - Condition aggravated [Fatal]
  - Metastasis [Fatal]
  - Therapeutic product effect incomplete [Unknown]

NARRATIVE: CASE EVENT DATE: 20210101
